FAERS Safety Report 22616764 (Version 1)
Quarter: 2023Q2

REPORT INFORMATION
  Report Type: Spontaneous
  Country: US (occurrence: US)
  Receive Date: 20230619
  Receipt Date: 20230619
  Transmission Date: 20230722
  Serious: No
  Sender: FDA-Public Use
  Company Number: US-009507513-2306USA003699

PATIENT
  Age: 65 Year
  Sex: Female

DRUGS (1)
  1. NOXAFIL [Suspect]
     Active Substance: POSACONAZOLE
     Indication: Neutropenia
     Dosage: 300 MILLIGRAM, QD
     Route: 048

REACTIONS (2)
  - Hepatic enzyme increased [Unknown]
  - Hypertransaminasaemia [Unknown]
